FAERS Safety Report 7472081-2 (Version None)
Quarter: 2011Q2

REPORT INFORMATION
  Report Type: 
  Country: None (occurrence: None)
  Receive Date: 20110511
  Receipt Date: 20101209
  Transmission Date: 20111010
  Serious: No
  Sender: FDA-Public Use
  Company Number: A0898894A

PATIENT
  Age: 43 Year
  Sex: Female

DRUGS (11)
  1. ATIVAN [Concomitant]
  2. TYKERB [Suspect]
     Indication: BREAST CANCER
     Dosage: 4TAB PER DAY
     Route: 048
     Dates: start: 20101204, end: 20101206
  3. MULTI-VITAMIN [Concomitant]
  4. DEXAMETHASONE SODIUM POSPHATE [Concomitant]
  5. GLUTAMINE [Concomitant]
  6. CALCIUM [Concomitant]
  7. MAALOX [Concomitant]
  8. METOPROLOL SUCCINATE [Concomitant]
  9. ADVAIR DISKUS 100/50 [Concomitant]
  10. HERCEPTIN [Concomitant]
  11. OXYCODONE [Concomitant]

REACTIONS (12)
  - DISTURBANCE IN ATTENTION [None]
  - DIARRHOEA [None]
  - DRUG ADMINISTRATION ERROR [None]
  - PALPITATIONS [None]
  - NAUSEA [None]
  - CONFUSIONAL STATE [None]
  - HEADACHE [None]
  - MYALGIA [None]
  - CHILLS [None]
  - PAIN [None]
  - SOMNOLENCE [None]
  - PAIN IN JAW [None]
